FAERS Safety Report 10627661 (Version 1)
Quarter: 2014Q4

REPORT INFORMATION
  Report Type: Report from Study
  Country: CA (occurrence: CA)
  Receive Date: 20141205
  Receipt Date: 20141205
  Transmission Date: 20150529
  Serious: Yes (Other)
  Sender: FDA-Public Use
  Company Number: CA-BRISTOL-MYERS SQUIBB COMPANY-21667084

PATIENT
  Age: 66 Year
  Sex: Male

DRUGS (6)
  1. ORENCIA [Suspect]
     Active Substance: ABATACEPT
     Indication: RHEUMATOID ARTHRITIS
     Dosage: 1DF=750 UNIT NOS
     Dates: start: 20121030
  2. SULFASALAZINE. [Concomitant]
     Active Substance: SULFASALAZINE
  3. PREDNISONE. [Concomitant]
     Active Substance: PREDNISONE
  4. LEUPROLIDE [Concomitant]
     Active Substance: LEUPROLIDE
  5. WELLBUTRIN [Concomitant]
     Active Substance: BUPROPION HYDROCHLORIDE
     Indication: CEREBROVASCULAR ACCIDENT
  6. ALTACE [Concomitant]
     Active Substance: RAMIPRIL

REACTIONS (2)
  - Nodule [Unknown]
  - Tendon rupture [Unknown]

NARRATIVE: CASE EVENT DATE: 2014
